FAERS Safety Report 8318796-5 (Version None)
Quarter: 2012Q2

REPORT INFORMATION
  Report Type: 
  Country: None (occurrence: None)
  Receive Date: 20120427
  Receipt Date: 20120423
  Transmission Date: 20120825
  Serious: Yes (Other)
  Sender: FDA-Public Use
  Company Number: US-AMGEN-USASP2012025521

PATIENT
  Age: 68 Year
  Sex: Female

DRUGS (2)
  1. ENBREL [Suspect]
     Indication: PSORIATIC ARTHROPATHY
     Dosage: 50 MG, QWK
     Dates: start: 20080211
  2. ENBREL [Suspect]
     Indication: PSORIASIS

REACTIONS (10)
  - CONTUSION [None]
  - PSORIASIS [None]
  - FALL [None]
  - LOCAL SWELLING [None]
  - AORTIC ANEURYSM [None]
  - EXCORIATION [None]
  - DIZZINESS [None]
  - CATARACT [None]
  - BALANCE DISORDER [None]
  - INTERVERTEBRAL DISC PROTRUSION [None]
